FAERS Safety Report 23815701 (Version 1)
Quarter: 2024Q2

REPORT INFORMATION
  Report Type: Other
  Country: IN (occurrence: None)
  Receive Date: 20240503
  Receipt Date: 20240503
  Transmission Date: 20240715
  Serious: Yes (Death)
  Sender: FDA-Public Use
  Company Number: IN-ROCHE-3556788

PATIENT
  Age: 31 Year
  Sex: Male

DRUGS (1)
  1. TECENTRIQ [Suspect]
     Active Substance: ATEZOLIZUMAB
     Indication: Lung cancer metastatic
     Route: 042
     Dates: start: 20231217

REACTIONS (1)
  - Death [Fatal]

NARRATIVE: CASE EVENT DATE: 20240410
